FAERS Safety Report 23822325 (Version 3)
Quarter: 2024Q2

REPORT INFORMATION
  Report Type: Spontaneous
  Country: US (occurrence: US)
  Receive Date: 20240506
  Receipt Date: 20240531
  Transmission Date: 20240716
  Serious: Yes (Hospitalization)
  Sender: FDA-Public Use
  Company Number: US-PARATEK PHARMACEUTICALS, INC.-2024PTK00345

PATIENT
  Age: 65 Year
  Sex: Male
  Weight: 114.29 kg

DRUGS (5)
  1. NUZYRA [Suspect]
     Active Substance: OMADACYCLINE
     Indication: Localised infection
     Dosage: 450 MG, 2X/DAY
     Route: 048
     Dates: start: 20240425, end: 20240426
  2. NUZYRA [Suspect]
     Active Substance: OMADACYCLINE
     Indication: Wound infection
  3. NUZYRA [Suspect]
     Active Substance: OMADACYCLINE
     Indication: Pseudomonas infection
  4. NUZYRA [Suspect]
     Active Substance: OMADACYCLINE
     Indication: Beta haemolytic streptococcal infection
  5. NUZYRA [Suspect]
     Active Substance: OMADACYCLINE
     Indication: Staphylococcal infection

REACTIONS (3)
  - Gas gangrene [Unknown]
  - Drug ineffective for unapproved indication [Recovered/Resolved]
  - Product administration error [Recovered/Resolved]

NARRATIVE: CASE EVENT DATE: 20240425
